FAERS Safety Report 5394405-2 (Version None)
Quarter: 2007Q3

REPORT INFORMATION
  Report Type: 
  Country: None (occurrence: None)
  Receive Date: 20070723
  Receipt Date: 20070720
  Transmission Date: 20080115
  Serious: Yes (Hospitalization)
  Sender: FDA-Public Use
  Company Number: US-BRISTOL-MYERS SQUIBB COMPANY-13757414

PATIENT
  Age: 17 Year
  Sex: Female

DRUGS (2)
  1. CETUXIMAB [Suspect]
     Indication: NEOPLASM
     Dosage: 220(UNIT NOT GIVEN)  IV 19MAR07-16APR07
     Route: 042
     Dates: start: 20070416, end: 20070416
  2. IRINOTECAN HCL [Suspect]
     Indication: NEOPLASM
     Dosage: 23 (NOT GIVEN) IV FROM 19MAR07-19APR07
     Route: 042
     Dates: start: 20070419, end: 20070419

REACTIONS (12)
  - BLOOD BICARBONATE DECREASED [None]
  - DIARRHOEA [None]
  - FEBRILE NEUTROPENIA [None]
  - HAEMOGLOBIN [None]
  - HYPOCALCAEMIA [None]
  - HYPOKALAEMIA [None]
  - HYPOMAGNESAEMIA [None]
  - NAUSEA [None]
  - NEUTROPHIL COUNT [None]
  - PLATELET COUNT [None]
  - VOMITING [None]
  - WHITE BLOOD CELL COUNT [None]
